FAERS Safety Report 6603543-5 (Version None)
Quarter: 2010Q1

REPORT INFORMATION
  Report Type: 
  Country: None (occurrence: None)
  Receive Date: 20100226
  Receipt Date: 20090922
  Transmission Date: 20100710
  Serious: No
  Sender: FDA-Public Use
  Company Number: A0808486A

PATIENT
  Age: 52 Year
  Sex: Female

DRUGS (5)
  1. VALTREX [Suspect]
     Indication: GENITAL HERPES
     Dosage: 500MG TWICE PER DAY
     Route: 048
     Dates: start: 20080101
  2. ZOVIRAX [Suspect]
     Indication: GENITAL HERPES
     Dosage: 400MG TWICE PER DAY
     Route: 048
     Dates: start: 20090520, end: 20090801
  3. SINGULAIR [Concomitant]
  4. IMITREX [Concomitant]
  5. ESTRADIOL [Concomitant]

REACTIONS (8)
  - ARTHRALGIA [None]
  - CHAPPED LIPS [None]
  - FATIGUE [None]
  - OEDEMA PERIPHERAL [None]
  - PAIN IN EXTREMITY [None]
  - PYREXIA [None]
  - SWELLING FACE [None]
  - TREMOR [None]
